FAERS Safety Report 7105466-4 (Version None)
Quarter: 2010Q4

REPORT INFORMATION
  Report Type: 
  Country: None (occurrence: None)
  Receive Date: 20101110
  Receipt Date: 20101029
  Transmission Date: 20110411
  Serious: Yes (Hospitalization, Other)
  Sender: FDA-Public Use
  Company Number: JPI-P-012819

PATIENT
  Age: 57 Year
  Sex: Male

DRUGS (1)
  1. XYREM [Suspect]
     Indication: NARCOLEPSY
     Dosage: 4.5 GM (2.25 GM, 2 IN 1 D), ORAL
     Route: 048
     Dates: start: 20101009

REACTIONS (4)
  - CHEST PAIN [None]
  - CORONARY ARTERY OCCLUSION [None]
  - INCREASED UPPER AIRWAY SECRETION [None]
  - URINARY INCONTINENCE [None]
